FAERS Safety Report 10854817 (Version 1)
Quarter: 2015Q1

REPORT INFORMATION
  Report Type: Spontaneous
  Country: NL (occurrence: None)
  Receive Date: 20150218
  Receipt Date: 20150218
  Transmission Date: 20150721
  Serious: Yes (Hospitalization, Disabling)
  Sender: FDA-Public Use
  Company Number: 2015FE00412

PATIENT
  Age: 67 Year
  Sex: Male

DRUGS (2)
  1. ZOLADEX [Suspect]
     Active Substance: GOSERELIN ACETATE
     Indication: PROSTATE CANCER
     Route: 058
     Dates: start: 20141202
  2. FIRMAGON [Suspect]
     Active Substance: DEGARELIX ACETATE
     Indication: PROSTATE CANCER
     Route: 058
     Dates: start: 20140717, end: 20141202

REACTIONS (4)
  - IVth nerve paresis [None]
  - Pituitary tumour benign [None]
  - Cerebrovascular accident [None]
  - IIIrd nerve paresis [None]

NARRATIVE: CASE EVENT DATE: 20150106
